FAERS Safety Report 10996246 (Version 5)
Quarter: 2015Q2

REPORT INFORMATION
  Report Type: Spontaneous
  Country: CN (occurrence: CN)
  Receive Date: 20150408
  Receipt Date: 20150617
  Transmission Date: 20150821
  Serious: Yes (Death, Life-Threatening, Hospitalization)
  Sender: FDA-Public Use
  Company Number: CN-ROCHE-1560705

PATIENT
  Age: 58 Year
  Sex: Female

DRUGS (2)
  1. NIFEDIPINE. [Concomitant]
     Active Substance: NIFEDIPINE
     Indication: HYPERTENSION
  2. XELODA [Suspect]
     Active Substance: CAPECITABINE
     Indication: BREAST CANCER
     Route: 048
     Dates: start: 20150325, end: 20150401

REACTIONS (13)
  - Septic shock [Fatal]
  - Diarrhoea [Recovering/Resolving]
  - Respiratory failure [Not Recovered/Not Resolved]
  - Photosensitivity reaction [Recovering/Resolving]
  - Mouth ulceration [Not Recovered/Not Resolved]
  - Perineal ulceration [Unknown]
  - Fungal infection [Not Recovered/Not Resolved]
  - Pneumonia [Not Recovered/Not Resolved]
  - Pancreatitis [Not Recovered/Not Resolved]
  - Drug eruption [Recovering/Resolving]
  - Multi-organ failure [Not Recovered/Not Resolved]
  - Hypersensitivity [Unknown]
  - Bone marrow failure [Not Recovered/Not Resolved]

NARRATIVE: CASE EVENT DATE: 20150328
